FAERS Safety Report 16544382 (Version 2)
Quarter: 2019Q3

REPORT INFORMATION
  Report Type: Spontaneous
  Country: US (occurrence: US)
  Receive Date: 20190709
  Receipt Date: 20190731
  Transmission Date: 20191004
  Serious: No
  Sender: FDA-Public Use
  Company Number: US-PFIZER INC-2019289941

PATIENT
  Age: 60 Year
  Sex: Male
  Weight: 102.6 kg

DRUGS (5)
  1. XYZAL [Concomitant]
     Active Substance: LEVOCETIRIZINE DIHYDROCHLORIDE
     Indication: HYPERSENSITIVITY
     Dosage: UNK
  2. WALGREENS SALINE NASAL SPRAY [Concomitant]
     Indication: HYPERSENSITIVITY
     Dosage: UNK
  3. ALLEGRA [Concomitant]
     Active Substance: FEXOFENADINE HYDROCHLORIDE
     Indication: HYPERSENSITIVITY
     Dosage: UNK, DAILY
  4. AFRIN [OXYMETAZOLINE] [Concomitant]
     Indication: HYPERSENSITIVITY
     Dosage: UNK, AS NEEDED (SPRAY SOME IN EACH NOSTRIL)
     Route: 055
  5. ALAVERT ALLERGY [Suspect]
     Active Substance: LORATADINE
     Indication: HYPERSENSITIVITY
     Dosage: 10 MG, 1X/DAY (TAKEN AROUND 9:00AM)
     Route: 048
     Dates: start: 20190627

REACTIONS (1)
  - Therapeutic product effect decreased [Unknown]
